FAERS Safety Report 7940863-6 (Version None)
Quarter: 2011Q4

REPORT INFORMATION
  Report Type: 
  Country: None (occurrence: None)
  Receive Date: 20111128
  Receipt Date: 20111118
  Transmission Date: 20120403
  Serious: Yes (Hospitalization, Other)
  Sender: FDA-Public Use
  Company Number: BR-JNJFOC-20111007525

PATIENT
  Age: 55 Year
  Sex: Male

DRUGS (7)
  1. DALMADORM [Concomitant]
     Indication: INSOMNIA
     Route: 065
  2. TRILEPTAL [Concomitant]
     Indication: PRODUCT USED FOR UNKNOWN INDICATION
     Route: 065
  3. PHENERGAN [Suspect]
     Indication: HYPERSENSITIVITY
     Route: 065
  4. LEVOTHYROXINE SODIUM [Concomitant]
     Indication: HYPOTHYROIDISM
     Route: 065
  5. BIPERIDEN HYDROCHLORIDE TAB [Concomitant]
     Indication: PRODUCT USED FOR UNKNOWN INDICATION
     Route: 065
  6. HALDOL [Suspect]
     Indication: PSYCHOTIC DISORDER
     Route: 065
     Dates: end: 20110101
  7. LANSOPRAZOLE [Concomitant]
     Indication: GASTRITIS
     Route: 065

REACTIONS (5)
  - FLUSHING [None]
  - PSYCHOTIC DISORDER [None]
  - INSOMNIA [None]
  - AGITATION [None]
  - HYPERTENSION [None]
